FAERS Safety Report 6213541-1 (Version None)
Quarter: 2009Q2

REPORT INFORMATION
  Report Type: 
  Country: None (occurrence: None)
  Receive Date: 20090603
  Receipt Date: 20090522
  Transmission Date: 20091009
  Serious: Yes (Other)
  Sender: FDA-Public Use
  Company Number: US-WATSON-2009-03734

PATIENT
  Age: 28 Year
  Sex: Female
  Weight: 56.7 kg

DRUGS (1)
  1. FERRLECIT [Suspect]
     Indication: ANAEMIA
     Dosage: 250 MG, OVER 2 HRS (1ST DOSE)
     Route: 042
     Dates: start: 20090515, end: 20090515

REACTIONS (10)
  - ANAPHYLACTOID REACTION [None]
  - ARTHRALGIA [None]
  - BLOOD PRESSURE DECREASED [None]
  - CHEST DISCOMFORT [None]
  - CHILLS [None]
  - CYANOSIS [None]
  - DIZZINESS [None]
  - ERYTHEMA [None]
  - HYPOXIA [None]
  - NAUSEA [None]
